FAERS Safety Report 21842209 (Version 1)
Quarter: 2023Q1

REPORT INFORMATION
  Report Type: Spontaneous
  Country: US (occurrence: None)
  Receive Date: 20230109
  Receipt Date: 20230109
  Transmission Date: 20230418
  Serious: No
  Sender: FDA-Public Use
  Company Number: None

PATIENT
  Sex: Female

DRUGS (20)
  1. TOBRAMYCIN [Suspect]
     Active Substance: TOBRAMYCIN
     Indication: Infective pulmonary exacerbation of cystic fibrosis
     Dosage: 300MG/5ML INHALATION??INHALE 5 ML VIA NEBULIZER TWICE DAILY FOR 28 DAYS EVERY OTHER MONTH
     Route: 055
     Dates: start: 20171010
  2. ALBUTEROL NEB 0.5% [Concomitant]
  3. BAQSIMI ONE POW 3MG/DOSE [Concomitant]
  4. CARVEDILOL TAB 12.5MG [Concomitant]
  5. DEXAMETH PHO INJ 10MG/ML [Concomitant]
  6. FLUOXETINE CAP 20MG [Concomitant]
  7. FLUOXETINE CAP 40MG [Concomitant]
  8. KENALOG-10 INJ 10MG/ML [Concomitant]
  9. LANTUS SOLOS INJ 100/ML [Concomitant]
  10. LO LOESTRIN TAB 1-10-10 [Concomitant]
  11. MONTELUKAST [Concomitant]
     Active Substance: MONTELUKAST SODIUM
  12. OMEPRAZOLE [Concomitant]
     Active Substance: OMEPRAZOLE
  13. PREDNISONE [Concomitant]
     Active Substance: PREDNISONE
  14. SIROLIMUS [Concomitant]
     Active Substance: SIROLIMUS
  15. SIROLIMUS [Concomitant]
     Active Substance: SIROLIMUS
  16. TACROLIMUS [Concomitant]
     Active Substance: TACROLIMUS
  17. TACROLIMUS [Concomitant]
     Active Substance: TACROLIMUS
  18. TRIKAFTA [Concomitant]
     Active Substance: ELEXACAFTOR\IVACAFTOR\TEZACAFTOR
     Dosage: OTHER STRENGTH : 100MG/50MG/75MG-15;?
  19. VALACYCLOVIR TAB 500MG [Concomitant]
  20. ZENPEP CAP 25000 [Concomitant]

REACTIONS (1)
  - Tremor [None]
